FAERS Safety Report 5238747-X (Version None)
Quarter: 2007Q1

REPORT INFORMATION
  Report Type: 
  Country: None (occurrence: None)
  Receive Date: 20061208
  Receipt Date: 20050221
  Transmission Date: 20070707
  Serious: Yes (Other)
  Sender: FDA-Public Use
  Company Number: 2004UW26194

PATIENT
  Age: 46 Year
  Sex: Female

DRUGS (5)
  1. CRESTOR [Suspect]
     Indication: BLOOD CHOLESTEROL INCREASED
     Dosage: 10 MG DAILY PO
     Route: 048
     Dates: start: 20040915, end: 20041014
  2. SYNTHROID [Concomitant]
  3. DIOVAN HCT [Concomitant]
  4. GLIPIZIDE [Concomitant]
  5. VIVELLE [Concomitant]

REACTIONS (4)
  - FATIGUE [None]
  - ILL-DEFINED DISORDER [None]
  - JAUNDICE [None]
  - NAUSEA [None]
